FAERS Safety Report 15378387 (Version 2)
Quarter: 2018Q3

REPORT INFORMATION
  Report Type: Spontaneous
  Country: US (occurrence: US)
  Receive Date: 20180913
  Receipt Date: 20180920
  Transmission Date: 20181010
  Serious: Yes (Life-Threatening)
  Sender: FDA-Public Use
  Company Number: US-FRESENIUS KABI-FK201809550

PATIENT
  Age: 34 Year
  Sex: Female
  Weight: 77.3 kg

DRUGS (1)
  1. DIPHENHYDRAMINE HYDROCHLORIDE INJECTION, USP [Suspect]
     Active Substance: DIPHENHYDRAMINE HYDROCHLORIDE
     Indication: MAST CELL ACTIVATION SYNDROME
     Dosage: INFUSION RATE: 15 MG/HOUR
     Route: 042
     Dates: start: 20180906, end: 20180906

REACTIONS (7)
  - Abdominal distension [Recovered/Resolved]
  - Cataplexy [Recovered/Resolved]
  - Anaphylactoid reaction [Recovered/Resolved]
  - Inflammation [Recovered/Resolved]
  - Fatigue [Recovered/Resolved]
  - Tachycardia [Recovered/Resolved]
  - Pain [Recovered/Resolved]

NARRATIVE: CASE EVENT DATE: 20180906
